FAERS Safety Report 6807225-6 (Version None)
Quarter: 2010Q2

REPORT INFORMATION
  Report Type: 
  Country: None (occurrence: None)
  Receive Date: 20100629
  Receipt Date: 20080905
  Transmission Date: 20101027
  Serious: Yes (Other)
  Sender: FDA-Public Use
  Company Number: US-PFIZER INC-2008066217

PATIENT
  Sex: Male
  Weight: 80.909 kg

DRUGS (3)
  1. ZYVOX [Suspect]
     Indication: LOCALISED INFECTION
     Dates: start: 20080704, end: 20080806
  2. LIPITOR [Concomitant]
  3. OMEPRAZOLE [Concomitant]

REACTIONS (1)
  - DRUG INTOLERANCE [None]
